FAERS Safety Report 6708943-0 (Version None)
Quarter: 2010Q2

REPORT INFORMATION
  Report Type: 
  Country: None (occurrence: None)
  Receive Date: 20100504
  Receipt Date: 20100422
  Transmission Date: 20101027
  Serious: Yes (Hospitalization, Other)
  Sender: FDA-Public Use
  Company Number: US-BAYER-201013092NA

PATIENT
  Age: 38 Year
  Sex: Female
  Weight: 154 kg

DRUGS (9)
  1. YAZ [Suspect]
     Indication: MENSTRUAL CYCLE MANAGEMENT
     Route: 048
     Dates: start: 20050401, end: 20090201
  2. YASMIN [Suspect]
     Indication: MENSTRUAL CYCLE MANAGEMENT
     Route: 048
     Dates: start: 20050401, end: 20090201
  3. COREG [Concomitant]
     Indication: HYPERTENSION
     Dates: start: 20000101
  4. ADVAIR DISKUS 100/50 [Concomitant]
     Dates: start: 20080101
  5. ZYRTEC [Concomitant]
     Indication: MULTIPLE ALLERGIES
     Dates: start: 20080101
  6. ALLEGRA [Concomitant]
     Indication: MULTIPLE ALLERGIES
     Dates: start: 20080101
  7. NEXIUM [Concomitant]
     Dates: start: 20080101
  8. PREVACID [Concomitant]
     Indication: DYSPEPSIA
     Dates: start: 20080101, end: 20090101
  9. HYDROCHLOROTHIAZIDE [Concomitant]
     Indication: OEDEMA
     Dates: start: 20080101, end: 20090101

REACTIONS (2)
  - DEEP VEIN THROMBOSIS [None]
  - PULMONARY EMBOLISM [None]
